FAERS Safety Report 22836327 (Version 6)
Quarter: 2023Q4

REPORT INFORMATION
  Report Type: Other
  Country: GB (occurrence: None)
  Receive Date: 20230818
  Receipt Date: 20231227
  Transmission Date: 20240109
  Serious: Yes (Hospitalization, Other)
  Sender: FDA-Public Use
  Company Number: GB-ROCHE-3382662

PATIENT
  Age: 64 Year
  Sex: Male
  Weight: 84.4 kg

DRUGS (10)
  1. ATEZOLIZUMAB [Suspect]
     Active Substance: ATEZOLIZUMAB
     Indication: Hepatocellular carcinoma
     Dosage: ON 17/MAY/2023, HE RECEIVED MOST RECENT DOSE OF STUDY DRUG PRIOR TO AE AND SAE WAS 1200 MG
     Route: 041
     Dates: start: 20230111
  2. BEVACIZUMAB [Suspect]
     Active Substance: BEVACIZUMAB
     Indication: Hepatocellular carcinoma
     Route: 065
     Dates: start: 20230111
  3. BUDESONIDE\FORMOTEROL [Concomitant]
     Active Substance: BUDESONIDE\FORMOTEROL
     Dosage: 200MCG+6MCG
     Dates: start: 1993
  4. ALBUTEROL [Concomitant]
     Active Substance: ALBUTEROL
     Dosage: 100MCG
     Dates: start: 1979
  5. CARVEDILOL [Concomitant]
     Active Substance: CARVEDILOL
     Dates: start: 20211124, end: 20230617
  6. OMEPRAZOLE [Concomitant]
     Active Substance: OMEPRAZOLE
     Dates: start: 202204
  7. CANDESARTAN [Concomitant]
     Active Substance: CANDESARTAN
     Indication: Sepsis
     Dates: start: 20230118, end: 20230617
  8. CANDESARTAN [Concomitant]
     Active Substance: CANDESARTAN
     Dates: start: 20230705
  9. HYDROCORTISONE [Concomitant]
     Active Substance: HYDROCORTISONE
     Dosage: YES
     Dates: start: 20230222, end: 20230617
  10. RENAPRO [Concomitant]
     Dates: start: 202211

REACTIONS (3)
  - Sepsis [Recovered/Resolved]
  - Oedema [Not Recovered/Not Resolved]
  - Acute kidney injury [Recovered/Resolved]

NARRATIVE: CASE EVENT DATE: 20230617
